FAERS Safety Report 6504028-7 (Version None)
Quarter: 2009Q4

REPORT INFORMATION
  Report Type: 
  Country: None (occurrence: None)
  Receive Date: 20091216
  Receipt Date: 20091216
  Transmission Date: 20100525
  Serious: Yes (Death, Life-Threatening, Hospitalization)
  Sender: FDA-Public Use
  Company Number: None

PATIENT
  Sex: Female
  Weight: 26.7 kg

DRUGS (13)
  1. BORTEZOMIB [Suspect]
     Indication: ACUTE LYMPHOCYTIC LEUKAEMIA RECURRENT
     Dosage: QS ON DAYS 1,4, 8 + 11 IV
     Route: 042
     Dates: start: 20091019
  2. BORTEZOMIB [Suspect]
     Indication: ACUTE LYMPHOCYTIC LEUKAEMIA RECURRENT
     Dosage: QS ON DAYS 1,4, 8 + 11 IV
     Route: 042
     Dates: start: 20091022
  3. BORTEZOMIB [Suspect]
     Indication: ACUTE LYMPHOCYTIC LEUKAEMIA RECURRENT
     Dosage: QS ON DAYS 1,4, 8 + 11 IV
     Route: 042
     Dates: start: 20091026
  4. BORTEZOMIB [Suspect]
     Indication: ACUTE LYMPHOCYTIC LEUKAEMIA RECURRENT
     Dosage: QS ON DAYS 1,4, 8 + 11 IV
     Route: 042
     Dates: start: 20091029
  5. BORTEZOMIB [Concomitant]
  6. DEXAMETHASONE [Concomitant]
  7. DOXORUBICIN HCL [Concomitant]
  8. PEG-ASPARAGINASE [Concomitant]
  9. VINCRISTINE [Concomitant]
  10. CYTARABINE [Concomitant]
  11. CYTARABINE [Concomitant]
  12. METHOTREXATE [Concomitant]
  13. HYDROCORTISONE [Concomitant]

REACTIONS (10)
  - ACIDOSIS [None]
  - BLOOD CULTURE POSITIVE [None]
  - EMPYEMA [None]
  - FEBRILE NEUTROPENIA [None]
  - HYPOTENSION [None]
  - PLEURAL EFFUSION [None]
  - PNEUMONIA NECROTISING [None]
  - RESPIRATORY DISTRESS [None]
  - SEPTIC SHOCK [None]
  - STAPHYLOCOCCAL INFECTION [None]
